FAERS Safety Report 5716385-X (Version None)
Quarter: 2008Q2

REPORT INFORMATION
  Report Type: 
  Country: None (occurrence: None)
  Receive Date: 20080415
  Receipt Date: 20071226
  Transmission Date: 20081010
  Serious: Yes (Other)
  Sender: FDA-Public Use
  Company Number: PHEH2007US16118

PATIENT
  Age: 53 Year
  Sex: Male

DRUGS (1)
  1. EXFORGE [Suspect]
     Dosage: 5/160 MG, QD, ORAL
     Route: 048
     Dates: start: 20071220

REACTIONS (1)
  - HYPERTENSION [None]
